FAERS Safety Report 12277880 (Version 3)
Quarter: 2018Q1

REPORT INFORMATION
  Report Type: Spontaneous
  Country: US (occurrence: US)
  Receive Date: 20160418
  Receipt Date: 20180123
  Transmission Date: 20180508
  Serious: Yes (Other)
  Sender: FDA-Public Use
  Company Number: US-ASTRAZENECA-2016SE39702

PATIENT
  Sex: Female
  Weight: 108.9 kg

DRUGS (4)
  1. TOUJEO [Concomitant]
     Active Substance: INSULIN GLARGINE
     Indication: TYPE 2 DIABETES MELLITUS
     Dosage: INJECTS 54 UNITS EVERY MORNING
  2. GLIPIZIDE. [Concomitant]
     Active Substance: GLIPIZIDE
     Indication: TYPE 2 DIABETES MELLITUS
     Dosage: AS NEEDED IN THE EVENINGS
     Route: 048
  3. ONGLYZA [Suspect]
     Active Substance: SAXAGLIPTIN HYDROCHLORIDE
     Indication: TYPE 2 DIABETES MELLITUS
     Dosage: 5 MG
     Route: 048
  4. BRILINTA [Suspect]
     Active Substance: TICAGRELOR
     Indication: ACUTE CORONARY SYNDROME
     Route: 048

REACTIONS (16)
  - Fatigue [Unknown]
  - Weight increased [Unknown]
  - Therapy cessation [Unknown]
  - Asthenia [Unknown]
  - Haemorrhage [Unknown]
  - Dizziness [Unknown]
  - Arthropathy [Unknown]
  - Blood glucose increased [Unknown]
  - Decreased activity [Unknown]
  - Urticaria [Unknown]
  - Acute coronary syndrome [Unknown]
  - Memory impairment [Unknown]
  - Gait disturbance [Unknown]
  - Type 2 diabetes mellitus [Unknown]
  - Road traffic accident [Unknown]
  - Blood glucose decreased [Unknown]
